FAERS Safety Report 16957591 (Version 1)
Quarter: 2019Q4

REPORT INFORMATION
  Report Type: Spontaneous
  Country: CA (occurrence: CA)
  Receive Date: 20191024
  Receipt Date: 20191024
  Transmission Date: 20200122
  Serious: Yes (Hospitalization, Other)
  Sender: FDA-Public Use
  Company Number: CA-VALIDUS PHARMACEUTICALS LLC-CA-2019VAL000631

PATIENT

DRUGS (37)
  1. AMLODIPINE [Suspect]
     Active Substance: AMLODIPINE BESYLATE
     Dosage: WEEK 3; INCREASE DOSE TO 10 MG DAILY EVERY MORNING
     Route: 065
  2. GLICLAZIDE [Suspect]
     Active Substance: GLICLAZIDE
     Dosage: 60 MG, QD, MODIFIED RELEASE
     Route: 065
  3. ACEBUTOLOL HYDROCHLORIDE. [Concomitant]
     Active Substance: ACEBUTOLOL HYDROCHLORIDE
     Indication: HYPERTENSION
     Dosage: UNK
  4. RANITIDINE. [Concomitant]
     Active Substance: RANITIDINE
     Indication: DYSPEPSIA
     Dosage: UNK
  5. PSYLLIUM                           /00029101/ [Concomitant]
     Active Substance: HERBALS\PLANTAGO OVATA LEAF
     Indication: CONSTIPATION
     Dosage: UNK
  6. AMLODIPINE [Suspect]
     Active Substance: AMLODIPINE BESYLATE
     Indication: HYPERTENSION
     Dosage: 10 MG, QD
     Route: 065
  7. AMLODIPINE [Suspect]
     Active Substance: AMLODIPINE BESYLATE
     Dosage: WEEK 1; DECREASE DOSE TO 2.5 EVERY MORNING
     Route: 065
  8. VALSARTAN. [Suspect]
     Active Substance: VALSARTAN
     Indication: HYPERTENSION
     Dosage: 320 MG, QD
     Route: 065
  9. BETAMETHASONE VALERATE. [Suspect]
     Active Substance: BETAMETHASONE VALERATE
     Dosage: UNK
     Route: 065
  10. ALISKIREN [Suspect]
     Active Substance: ALISKIREN
     Indication: HYPERTENSION
     Dosage: 300 MG, QD
     Route: 065
  11. PANTOPRAZOLE [Concomitant]
     Active Substance: PANTOPRAZOLE
     Indication: CEREBROVASCULAR ACCIDENT
     Dosage: UNK
  12. LEVOTHYROXINE SODIUM. [Concomitant]
     Active Substance: LEVOTHYROXINE SODIUM
     Indication: HYPOTHYROIDISM
     Dosage: UNK
  13. AMLODIPINE [Suspect]
     Active Substance: AMLODIPINE BESYLATE
     Dosage: DOSE REINCREASED
     Route: 065
  14. ACETYLSALICYLIC ACID [Concomitant]
     Active Substance: ASPIRIN
     Indication: CEREBROVASCULAR ACCIDENT
     Dosage: UNK
  15. CALCIUM CARBONATE. [Concomitant]
     Active Substance: CALCIUM CARBONATE
     Indication: OSTEOPOROSIS
     Dosage: UNK
  16. SITAGLIPTIN [Suspect]
     Active Substance: SITAGLIPTIN
     Indication: DIABETES MELLITUS
     Dosage: 100 MG, QD
     Route: 065
  17. CALCIPOTRIENE. [Concomitant]
     Active Substance: CALCIPOTRIENE
     Indication: PSORIASIS
     Dosage: UNK
  18. VALSARTAN. [Suspect]
     Active Substance: VALSARTAN
     Dosage: DOSE DOUBLED DUE TO HIGH BP
     Route: 065
  19. METHOCARBAMOL. [Concomitant]
     Active Substance: METHOCARBAMOL
     Indication: PAIN
     Dosage: UNK
  20. FLUTICASONE. [Concomitant]
     Active Substance: FLUTICASONE
     Indication: COUGH
     Dosage: UNK
  21. VITAMIN D                          /00107901/ [Concomitant]
     Active Substance: ERGOCALCIFEROL
     Indication: OSTEOPOROSIS
     Dosage: UNK
  22. ACETAMINOPHEN. [Concomitant]
     Active Substance: ACETAMINOPHEN
     Indication: PAIN
     Dosage: UNK
  23. FUROSEMIDE. [Suspect]
     Active Substance: FUROSEMIDE
     Indication: OEDEMA PERIPHERAL
     Dosage: 40 MG, QD
     Route: 065
  24. METFORMIN HYDROCHLORIDE. [Suspect]
     Active Substance: METFORMIN HYDROCHLORIDE
     Indication: DIABETES MELLITUS
     Dosage: 500 MG, BID
     Route: 065
  25. GLICLAZIDE [Suspect]
     Active Substance: GLICLAZIDE
     Indication: DIABETES MELLITUS
     Dosage: 30 MG, BID
     Route: 065
  26. ALLOPURINOL. [Concomitant]
     Active Substance: ALLOPURINOL
     Indication: GOUT
     Dosage: UNK
  27. AMLODIPINE [Suspect]
     Active Substance: AMLODIPINE BESYLATE
     Dosage: UNK, TAPERED
     Route: 065
  28. PRAMIPEXOLE HYDROCHLORIDE [Concomitant]
     Active Substance: PRAMIPEXOLE DIHYDROCHLORIDE
     Indication: RESTLESS LEGS SYNDROME
     Dosage: UNK
  29. TRAMADOL HYDROCHLORIDE. [Concomitant]
     Active Substance: TRAMADOL HYDROCHLORIDE
     Indication: PAIN
     Dosage: UNK
  30. CYANOCOBALAMIN. [Concomitant]
     Active Substance: CYANOCOBALAMIN
     Indication: OSTEOPOROSIS
     Dosage: UNK
  31. BETAMETHASONE VALERATE. [Suspect]
     Active Substance: BETAMETHASONE VALERATE
     Indication: PSORIASIS
     Dosage: UNK
     Route: 065
  32. LABETALOL [Suspect]
     Active Substance: LABETALOL\LABETALOL HYDROCHLORIDE
     Indication: HYPERTENSION
     Dosage: 200 MG, QD
     Route: 065
  33. HYDRALAZINE [Suspect]
     Active Substance: HYDRALAZINE HYDROCHLORIDE
     Indication: HYPERTENSION
     Dosage: UNK
     Route: 065
  34. RISEDRONIC ACID [Suspect]
     Active Substance: RISEDRONIC ACID
     Indication: OSTEOPOROSIS
     Dosage: 35 MG, QW
     Route: 065
  35. SIMVASTATIN. [Concomitant]
     Active Substance: SIMVASTATIN
     Indication: CEREBROVASCULAR ACCIDENT
     Dosage: UNK
  36. SALBUTAMOL SULFATE [Concomitant]
     Active Substance: ALBUTEROL SULFATE
     Indication: PAIN
     Dosage: UNK
  37. FLUTICASONE. [Concomitant]
     Active Substance: FLUTICASONE
     Indication: WHEEZING

REACTIONS (6)
  - Contusion [Unknown]
  - Hypertension [Unknown]
  - Peripheral swelling [Unknown]
  - Treatment noncompliance [Unknown]
  - Diabetes mellitus inadequate control [Unknown]
  - Drug ineffective [Unknown]
